FAERS Safety Report 9094128 (Version 2)
Quarter: 2013Q2

REPORT INFORMATION
  Report Type: Spontaneous
  Country: US (occurrence: None)
  Receive Date: 20120525
  Receipt Date: 20120827
  Transmission Date: 20140414
  Serious: Yes (Other)
  Sender: FDA-Public Use
  Company Number: 350513

PATIENT
  Age: 47 Year
  Sex: Female

DRUGS (4)
  1. VICTOZA (LIRAGLITUDE) SOLOUTION FOR INJECTION, 6 MG/ML [Suspect]
     Indication: TYPE 2 DIABETES MELLITUS
     Route: 058
  2. CRESTOR (ROSUVASTATIN CALCIUM) [Concomitant]
  3. LOSARTAN (LOSARTAN) [Concomitant]
  4. METFORMIN (METFORMIN) [Concomitant]

REACTIONS (1)
  - Polymenorrhoea [None]
